FAERS Safety Report 6097058-3 (Version None)
Quarter: 2009Q1

REPORT INFORMATION
  Report Type: 
  Country: None (occurrence: None)
  Receive Date: 20090227
  Receipt Date: 20090220
  Transmission Date: 20090719
  Serious: Yes (Hospitalization, Other)
  Sender: FDA-Public Use
  Company Number: PHHY2009CH06462

PATIENT
  Age: 50 Year
  Sex: Male

DRUGS (10)
  1. EXJADE [Suspect]
     Indication: IRON OVERLOAD
     Dosage: UNK
     Route: 048
     Dates: start: 20080501, end: 20081209
  2. THALIDOMIDE [Suspect]
     Dosage: 50 MG/D
     Dates: start: 20081008, end: 20081021
  3. THALIDOMIDE [Suspect]
     Dosage: 100 MG/DAY
     Dates: start: 20081022, end: 20081209
  4. NULYTELY [Concomitant]
     Dosage: 2 POWDER SACHETS/DAY
     Dates: end: 20081201
  5. NOVONORM [Concomitant]
     Dosage: 2X1 MG/DAY
  6. MARCUMAR [Concomitant]
     Dosage: 3 MG/DAY
  7. LIQUAEMIN INJ [Concomitant]
     Dosage: UNK
     Dates: start: 20081201
  8. FRAGMIN [Concomitant]
     Dosage: UNK
     Dates: start: 20081201
  9. FOLIC ACID [Concomitant]
     Dosage: 5 MG/DAY
  10. RED BLOOD CELLS [Suspect]
     Dosage: 59 UNITS

REACTIONS (10)
  - ABDOMINAL PAIN LOWER [None]
  - ASTHENIA [None]
  - BLOOD BILIRUBIN INCREASED [None]
  - CHROMATURIA [None]
  - DIZZINESS POSTURAL [None]
  - DYSPNOEA [None]
  - EPISTAXIS [None]
  - HEPATIC STEATOSIS [None]
  - LIVER INJURY [None]
  - TRANSAMINASES INCREASED [None]
